FAERS Safety Report 7219308-X (Version None)
Quarter: 2011Q1

REPORT INFORMATION
  Report Type: 
  Country: None (occurrence: None)
  Receive Date: 20110111
  Receipt Date: 20101227
  Transmission Date: 20110831
  Serious: Yes (Other)
  Sender: FDA-Public Use
  Company Number: US-PFIZER INC-2010179678

PATIENT
  Sex: Male
  Weight: 94.331 kg

DRUGS (3)
  1. HYDROCHLOROTHIAZIDE [Interacting]
     Indication: DIURETIC THERAPY
     Dosage: 12.5 MG, 1X/DAY
     Route: 048
     Dates: start: 20101201, end: 20101201
  2. HYDROCHLOROTHIAZIDE [Interacting]
     Indication: HEADACHE
  3. LYRICA [Suspect]
     Indication: NEURALGIA
     Dosage: 150 MG, 2X/DAY
     Route: 048

REACTIONS (5)
  - NEURALGIA [None]
  - HEADACHE [None]
  - DRUG INEFFECTIVE [None]
  - BLOOD GLUCOSE INCREASED [None]
  - DRUG INTERACTION [None]
